FAERS Safety Report 18274351 (Version 1)
Quarter: 2020Q3

REPORT INFORMATION
  Report Type: Spontaneous
  Country: US (occurrence: US)
  Receive Date: 20200916
  Receipt Date: 20200916
  Transmission Date: 20201103
  Serious: Yes (Hospitalization)
  Sender: FDA-Public Use
  Company Number: US-JNJFOC-20200912645

PATIENT
  Age: 42 Year
  Sex: Male
  Weight: 120.31 kg

DRUGS (2)
  1. LISINOPRIL. [Suspect]
     Active Substance: LISINOPRIL
     Indication: HYPERTENSION
     Route: 048
  2. INVOKANA [Suspect]
     Active Substance: CANAGLIFLOZIN
     Indication: PRODUCT USED FOR UNKNOWN INDICATION
     Route: 048

REACTIONS (3)
  - Fournier^s gangrene [Recovering/Resolving]
  - Fall [Unknown]
  - Necrotising fasciitis [Recovering/Resolving]

NARRATIVE: CASE EVENT DATE: 201610
